FAERS Safety Report 16941999 (Version 2)
Quarter: 2019Q4

REPORT INFORMATION
  Report Type: Spontaneous
  Country: US (occurrence: US)
  Receive Date: 20191021
  Receipt Date: 20191022
  Transmission Date: 20200122
  Serious: Yes (Death, Life-Threatening, Other)
  Sender: FDA-Public Use
  Company Number: US-PFIZER INC-2004017260

PATIENT
  Age: 26 Year
  Sex: Female

DRUGS (4)
  1. PROZAC [Interacting]
     Active Substance: FLUOXETINE HYDROCHLORIDE
     Indication: ANXIETY
     Dosage: 10 MG, 1X/DAY
     Route: 065
     Dates: start: 20030123, end: 200305
  2. GEODON [Suspect]
     Active Substance: ZIPRASIDONE HYDROCHLORIDE\ZIPRASIDONE MESYLATE
     Indication: BIPOLAR DISORDER
     Dosage: 40 MG, 2X/DAY
     Route: 065
     Dates: start: 200211
  3. ABILIFY [Interacting]
     Active Substance: ARIPIPRAZOLE
     Indication: ILL-DEFINED DISORDER
     Dosage: UNK
     Route: 065
     Dates: start: 200309
  4. LAMICTAL [Interacting]
     Active Substance: LAMOTRIGINE
     Indication: ILL-DEFINED DISORDER
     Dosage: UNK
     Route: 065

REACTIONS (21)
  - Headache [Unknown]
  - Weight increased [Recovering/Resolving]
  - Vomiting [Unknown]
  - Restlessness [Unknown]
  - Insomnia [Unknown]
  - Mania [Unknown]
  - Bipolar disorder [Unknown]
  - Flashback [Unknown]
  - Memory impairment [Unknown]
  - Tension [Unknown]
  - Irritability [Unknown]
  - Sudden death [Fatal]
  - Hallucination, auditory [Unknown]
  - Anxiety [Unknown]
  - Arrhythmia [Fatal]
  - Suicidal ideation [Unknown]
  - Unresponsive to stimuli [Unknown]
  - Sedation [Unknown]
  - Akathisia [Unknown]
  - Drug interaction [Unknown]
  - Depression [Unknown]

NARRATIVE: CASE EVENT DATE: 20021114
